FAERS Safety Report 9781826 (Version 2)
Quarter: 2014Q1

REPORT INFORMATION
  Report Type: Spontaneous
  Country: US (occurrence: US)
  Receive Date: 20131225
  Receipt Date: 20140120
  Transmission Date: 20141002
  Serious: Yes (Hospitalization)
  Sender: FDA-Public Use
  Company Number: US-BIOGENIDEC-2013BI122467

PATIENT
  Age: 47 Year
  Sex: Female

DRUGS (7)
  1. TECFIDERA [Suspect]
     Indication: MULTIPLE SCLEROSIS
     Route: 048
     Dates: start: 201308
  2. TECFIDERA [Suspect]
     Indication: MULTIPLE SCLEROSIS
     Route: 048
     Dates: start: 201308, end: 20131108
  3. TRIAMTERENE [Concomitant]
  4. HYDROCHLOROTHIAZIDE [Concomitant]
  5. ZOLOFT [Concomitant]
  6. PERCOCET [Concomitant]
  7. FLEXERIL [Concomitant]

REACTIONS (2)
  - Epigastric discomfort [Unknown]
  - Diverticulitis [Unknown]
